FAERS Safety Report 4826509-4 (Version None)
Quarter: 2005Q4

REPORT INFORMATION
  Report Type: 
  Country: None (occurrence: None)
  Receive Date: 20051111
  Receipt Date: 20050803
  Transmission Date: 20060501
  Serious: Yes (Hospitalization)
  Sender: FDA-Public Use
  Company Number: US-MERCK-0508USA01374

PATIENT
  Age: 72 Year
  Sex: Male
  Weight: 84 kg

DRUGS (8)
  1. VIOXX [Suspect]
     Indication: NECK PAIN
     Route: 048
     Dates: start: 20000623, end: 20040723
  2. TRAZODONE HYDROCHLORIDE [Concomitant]
     Indication: INSOMNIA
     Route: 065
     Dates: start: 20000620
  3. TRAZODONE HYDROCHLORIDE [Concomitant]
     Route: 065
     Dates: start: 20040614
  4. TRAZODONE HYDROCHLORIDE [Concomitant]
     Indication: PAIN
     Route: 065
     Dates: start: 20000620
  5. TRAZODONE HYDROCHLORIDE [Concomitant]
     Route: 065
     Dates: start: 20040614
  6. ST. JOSEPH ADULT CHEWABLE ASPIRIN [Concomitant]
     Route: 065
  7. CELEXA [Concomitant]
     Route: 065
     Dates: start: 20040614, end: 20040628
  8. NORTRIPTYLINE [Concomitant]
     Route: 065
     Dates: start: 20000131

REACTIONS (5)
  - DEPRESSION [None]
  - DYSPEPSIA [None]
  - EMOTIONAL DISTRESS [None]
  - GASTROOESOPHAGEAL REFLUX DISEASE [None]
  - MYOCARDIAL INFARCTION [None]
